FAERS Safety Report 4533668-X (Version None)
Quarter: 2004Q4

REPORT INFORMATION
  Report Type: 
  Country: None (occurrence: None)
  Receive Date: 20041210
  Receipt Date: 20041018
  Transmission Date: 20050328
  Serious: No
  Sender: FDA-Public Use
  Company Number: 2004-00654

PATIENT

DRUGS (1)
  1. VELCADE [Suspect]

REACTIONS (1)
  - ILEUS [None]
